FAERS Safety Report 15079880 (Version 2)
Quarter: 2018Q3

REPORT INFORMATION
  Report Type: Spontaneous
  Country: US (occurrence: US)
  Receive Date: 20180627
  Receipt Date: 20180817
  Transmission Date: 20181010
  Serious: Yes (Other)
  Sender: FDA-Public Use
  Company Number: US-COOPERSURGICAL, INC.-US-2018CPS018533

PATIENT

DRUGS (2)
  1. LEXAPRO [Concomitant]
     Active Substance: ESCITALOPRAM OXALATE
     Indication: ANXIETY
     Dosage: UNK
     Route: 065
  2. PARAGARD T 380A [Suspect]
     Active Substance: COPPER
     Indication: CONTRACEPTION
     Dosage: UNK
     Route: 015
     Dates: start: 20111026, end: 20171220

REACTIONS (12)
  - Pregnancy with contraceptive device [Recovered/Resolved]
  - Vaginal haemorrhage [Recovered/Resolved]
  - Device expulsion [Recovered/Resolved]
  - Amenorrhoea [Recovered/Resolved]
  - Abortion spontaneous [Recovered/Resolved]
  - Device issue [Unknown]
  - Endometrial thickening [Unknown]
  - Maternal exposure during pregnancy [Unknown]
  - Pelvic discomfort [Unknown]
  - Drug ineffective [Unknown]
  - Muscle spasms [Unknown]
  - Premenstrual syndrome [Not Recovered/Not Resolved]

NARRATIVE: CASE EVENT DATE: 2017
